FAERS Safety Report 4570253-8 (Version None)
Quarter: 2005Q1

REPORT INFORMATION
  Report Type: 
  Country: None (occurrence: None)
  Receive Date: 20050127
  Receipt Date: 20050127
  Transmission Date: 20050727
  Serious: Yes (Hospitalization)
  Sender: FDA-Public Use
  Company Number: None

PATIENT
  Sex: Male
  Weight: 76.6579 kg

DRUGS (12)
  1. IRESSA [Suspect]
     Indication: PANCREATIC CARCINOMA
     Dosage: 250MG  DAILY ORAL
     Route: 048
     Dates: start: 20031024, end: 20031227
  2. COUMADIN [Concomitant]
  3. COZAAR [Concomitant]
  4. TAMBOCOR [Concomitant]
  5. NEXIUM [Concomitant]
  6. GLUCOSAMINE WITH CHONDROITIN [Concomitant]
  7. PANCREA CARB MS [Concomitant]
  8. ENSURE [Concomitant]
  9. SENNA [Concomitant]
  10. COMPAZINE [Concomitant]
  11. OXYCODONE HCL [Concomitant]
  12. AMBIEN [Concomitant]

REACTIONS (3)
  - ANAEMIA [None]
  - DEHYDRATION [None]
  - OEDEMA PERIPHERAL [None]
